FAERS Safety Report 4878143-8 (Version None)
Quarter: 2005Q4

REPORT INFORMATION
  Report Type: 
  Country: None (occurrence: None)
  Receive Date: 20051212
  Receipt Date: 20051003
  Transmission Date: 20060501
  Serious: No
  Sender: FDA-Public Use
  Company Number: 2005-01335

PATIENT
  Age: 62 Year
  Sex: Male
  Weight: 89.8 kg

DRUGS (7)
  1. VELCADE [Suspect]
     Indication: MULTIPLE MYELOMA
     Dosage: 2.00 MG, 2/WEEK, INTRAVENOUS
     Route: 042
     Dates: start: 20040917, end: 20050315
  2. COUMADIN [Concomitant]
  3. LASIX [Concomitant]
  4. DAPSONE [Concomitant]
  5. POTASSIUM (POTASSIUM) [Concomitant]
  6. ZOMETA [Concomitant]
  7. IRON (IRON) [Concomitant]

REACTIONS (5)
  - DEHYDRATION [None]
  - DIARRHOEA [None]
  - DYSPNOEA EXERTIONAL [None]
  - RESPIRATORY TRACT INFECTION [None]
  - WEIGHT DECREASED [None]
